FAERS Safety Report 9434335 (Version 1)
Quarter: 2013Q3

REPORT INFORMATION
  Report Type: Spontaneous
  Country: US (occurrence: None)
  Receive Date: 20130731
  Receipt Date: 20130731
  Transmission Date: 20140515
  Serious: Yes (Death)
  Sender: FDA-Public Use
  Company Number: None

PATIENT
  Sex: Male

DRUGS (1)
  1. TEMODAR [Suspect]
     Indication: BRAIN NEOPLASM MALIGNANT
     Dosage: TEMODAR 250 MG CAPSULES  1 QDX5DAYS Q 28 DAYS  BY MOUTH
     Route: 048
     Dates: start: 20130220, end: 20130524

REACTIONS (1)
  - Death [None]
